FAERS Safety Report 12104149 (Version 3)
Quarter: 2016Q2

REPORT INFORMATION
  Report Type: Spontaneous
  Country: CN (occurrence: CN)
  Receive Date: 20160223
  Receipt Date: 20160408
  Transmission Date: 20160815
  Serious: Yes (Other)
  Sender: FDA-Public Use
  Company Number: PHHY2016CN022467

PATIENT
  Sex: Female

DRUGS (1)
  1. DIOVAN [Suspect]
     Active Substance: VALSARTAN
     Indication: HYPERTENSION
     Dosage: 80 MG, QD
     Route: 048

REACTIONS (5)
  - Obstructive airways disorder [Unknown]
  - Lung infection [Recovered/Resolved]
  - Dysphagia [Unknown]
  - Drug ineffective [Unknown]
  - Wrong technique in product usage process [Unknown]
